FAERS Safety Report 8927101 (Version 1)
Quarter: 2012Q4

REPORT INFORMATION
  Report Type: 
  Country: US (occurrence: US)
  Receive Date: 20121127
  Receipt Date: 20121127
  Transmission Date: 20130627
  Serious: No
  Sender: FDA-Public Use
  Company Number: US-MYLANLABS-2012S1018013

PATIENT
  Sex: Female

DRUGS (1)
  1. MONTELUKAST SODIUM [Suspect]
     Route: 048
     Dates: start: 20120820

REACTIONS (2)
  - Hypersensitivity [Not Recovered/Not Resolved]
  - Reaction to drug excipients [Not Recovered/Not Resolved]
